FAERS Safety Report 25070390 (Version 2)
Quarter: 2025Q2

REPORT INFORMATION
  Report Type: Spontaneous
  Country: US (occurrence: US)
  Receive Date: 20250312
  Receipt Date: 20250411
  Transmission Date: 20250716
  Serious: No
  Sender: INCYTE
  Company Number: US-EVENT-001939

PATIENT
  Age: 45 Year

DRUGS (1)
  1. OPZELURA [Suspect]
     Active Substance: RUXOLITINIB PHOSPHATE
     Indication: Vitiligo
     Dosage: 1.5 PERCENT, BID (APPLY A THIN LAYER TO PIGMENTATION PATCHES ON ARM AND CHEST TWICE DAILY AS NEEDED)

REACTIONS (2)
  - Product availability issue [Unknown]
  - Off label use [Unknown]
